FAERS Safety Report 8018659-9 (Version None)
Quarter: 2012Q1

REPORT INFORMATION
  Report Type: 
  Country: None (occurrence: None)
  Receive Date: 20120103
  Receipt Date: 20120103
  Transmission Date: 20120608
  Serious: No
  Sender: FDA-Public Use
  Company Number: None

PATIENT
  Age: 60 Year
  Sex: Female
  Weight: 47.627 kg

DRUGS (1)
  1. DURICEF [Suspect]
     Indication: INFECTION PROPHYLAXIS
     Dosage: 500 MG BID X 5 DAYS
     Route: 048
     Dates: start: 20111021, end: 20111025

REACTIONS (3)
  - ULCER [None]
  - BLISTER [None]
  - VASCULITIS [None]
